FAERS Safety Report 23231561 (Version 1)
Quarter: 2023Q4

REPORT INFORMATION
  Report Type: Spontaneous
  Country: US (occurrence: None)
  Receive Date: 20231124
  Receipt Date: 20231124
  Transmission Date: 20240110
  Serious: Yes (Other)
  Sender: FDA-Public Use
  Company Number: None

PATIENT
  Age: 79 Year
  Sex: Male
  Weight: 69.93 kg

DRUGS (5)
  1. VENCLEXTA [Suspect]
     Active Substance: VENETOCLAX
     Indication: Acute myeloid leukaemia
     Dosage: OTHER FREQUENCY : QD FOR 21 ON/7 OFF;?
     Route: 048
     Dates: start: 20230307
  2. LEVOTHYROXINE [Concomitant]
     Active Substance: LEVOTHYROXINE
  3. MEGESTROL [Concomitant]
     Active Substance: MEGESTROL
  4. LYRICA [Concomitant]
     Active Substance: PREGABALIN
  5. NORCO [Concomitant]
     Active Substance: ACETAMINOPHEN\HYDROCODONE BITARTRATE

REACTIONS (2)
  - Neutropenia [None]
  - Thrombocytopenia [None]

NARRATIVE: CASE EVENT DATE: 20231113
